FAERS Safety Report 15294878 (Version 1)
Quarter: 2018Q4

REPORT INFORMATION
  Report Type: Spontaneous
  Country: US (occurrence: US)
  Receive Date: 20180820
  Receipt Date: 20180820
  Transmission Date: 20190204
  Serious: No
  Sender: FDA-Public Use
  Company Number: US-BAYER-2018-151919

PATIENT
  Age: 68 Year
  Sex: Male
  Weight: 79 kg

DRUGS (1)
  1. CLARITIN [Suspect]
     Active Substance: LORATADINE
     Indication: PAIN
     Dosage: 1 DF, UNK
     Route: 048
     Dates: start: 201806, end: 201806

REACTIONS (4)
  - Circumstance or information capable of leading to medication error [Unknown]
  - Off label use [Unknown]
  - Product use in unapproved indication [Unknown]
  - Product quality control issue [None]

NARRATIVE: CASE EVENT DATE: 201806
